FAERS Safety Report 4588388-2 (Version None)
Quarter: 2005Q1

REPORT INFORMATION
  Report Type: 
  Country: None (occurrence: None)
  Receive Date: 20050216
  Receipt Date: 20050128
  Transmission Date: 20050727
  Serious: Yes (Other)
  Sender: FDA-Public Use
  Company Number: USA030844143

PATIENT
  Age: 55 Year
  Sex: Female
  Weight: 70 kg

DRUGS (10)
  1. FORTEO [Suspect]
     Indication: OSTEOPOROSIS
     Dosage: 20 UG DAY
     Dates: start: 20030812
  2. METOPROLOL [Concomitant]
  3. ACCUPRIL (QUINAPRIL HYDROCHLOROTHIAZIDE) [Concomitant]
  4. PROTONIX [Concomitant]
  5. PLAVIX [Concomitant]
  6. ASPIRIN [Concomitant]
  7. LIPITOR [Concomitant]
  8. VITAMIN D [Concomitant]
  9. VICODIN [Concomitant]
  10. TYLENOL [Concomitant]

REACTIONS (8)
  - ARTHRALGIA [None]
  - BLOOD CALCIUM INCREASED [None]
  - BONE PAIN [None]
  - CHOLELITHIASIS [None]
  - INJECTION SITE HAEMORRHAGE [None]
  - MALABSORPTION [None]
  - PHARMACEUTICAL PRODUCT COMPLAINT [None]
  - VITAMIN D DECREASED [None]
